FAERS Safety Report 23078891 (Version 1)
Quarter: 2023Q4

REPORT INFORMATION
  Report Type: Spontaneous
  Country: US (occurrence: None)
  Receive Date: 20231017
  Receipt Date: 20231017
  Transmission Date: 20240110
  Serious: Yes (Death)
  Sender: FDA-Public Use
  Company Number: None

PATIENT
  Sex: Female
  Weight: 62.55 kg

DRUGS (12)
  1. REVLIMID [Suspect]
     Active Substance: LENALIDOMIDE
     Indication: Plasma cell myeloma
     Dosage: FREQUENCY : DAILY;?
     Route: 048
     Dates: start: 20230426, end: 20230923
  2. ATORVASTATIN [Concomitant]
     Active Substance: ATORVASTATIN
  3. CARVEDILOL [Concomitant]
     Dates: start: 20221018
  4. ELIQUIS [Concomitant]
     Dates: start: 20230512
  5. ENTRESTO [Concomitant]
     Dates: start: 20221018
  6. GABAPENTIN [Concomitant]
  7. NOVOLIN [Concomitant]
  8. ONDANSETRON [Concomitant]
     Active Substance: ONDANSETRON
     Dates: start: 20230418
  9. PREDNISONE [Concomitant]
     Dates: start: 20221018
  10. Protonix [Concomitant]
     Dates: start: 20230905
  11. REVLIMID [Concomitant]
     Dates: start: 20230417, end: 20230420
  12. SPIRIVA RESPIMAT INH [Concomitant]
     Dates: start: 20221018

REACTIONS (1)
  - Death [None]
